FAERS Safety Report 18694803 (Version 1)
Quarter: 2020Q4

REPORT INFORMATION
  Report Type: Spontaneous
  Country: US (occurrence: US)
  Receive Date: 20201231
  Receipt Date: 20201231
  Transmission Date: 20210114
  Serious: Yes (Hospitalization, Other)
  Sender: FDA-Public Use
  Company Number: None

PATIENT
  Sex: Male

DRUGS (1)
  1. VOTRIENT [Suspect]
     Active Substance: PAZOPANIB HYDROCHLORIDE
     Indication: RENAL CANCER
     Dosage: ?          OTHER DOSE:3 TABS ;?
     Route: 048
     Dates: start: 20201207

REACTIONS (3)
  - Pain [None]
  - Hypophagia [None]
  - Spinal cord neoplasm [None]
